FAERS Safety Report 7656999-3 (Version None)
Quarter: 2011Q3

REPORT INFORMATION
  Report Type: 
  Country: None (occurrence: None)
  Receive Date: 20110804
  Receipt Date: 20110727
  Transmission Date: 20111222
  Serious: Yes (Other)
  Sender: FDA-Public Use
  Company Number: FR-JNJFOC-20110800466

PATIENT
  Sex: Female

DRUGS (2)
  1. REMICADE [Suspect]
     Route: 064
  2. REMICADE [Suspect]
     Indication: MATERNAL EXPOSURE DURING PREGNANCY
     Route: 064
     Dates: start: 20110414

REACTIONS (3)
  - PREMATURE BABY [None]
  - NEUTROPENIA [None]
  - OMPHALITIS [None]
